FAERS Safety Report 6637143-8 (Version None)
Quarter: 2010Q1

REPORT INFORMATION
  Report Type: 
  Country: None (occurrence: None)
  Receive Date: 20100316
  Receipt Date: 20100226
  Transmission Date: 20100710
  Serious: No
  Sender: FDA-Public Use
  Company Number: US-ABBOTT-10P-163-0617234-00

PATIENT
  Sex: Male
  Weight: 87.168 kg

DRUGS (1)
  1. TRILIPIX [Suspect]
     Indication: BLOOD TRIGLYCERIDES INCREASED
     Route: 048

REACTIONS (7)
  - ARTHRALGIA [None]
  - DYSPEPSIA [None]
  - FLANK PAIN [None]
  - GRIP STRENGTH DECREASED [None]
  - MYALGIA [None]
  - NEPHROLITHIASIS [None]
  - POLLAKIURIA [None]
